FAERS Safety Report 13129053 (Version 1)
Quarter: 2017Q1

REPORT INFORMATION
  Report Type: Spontaneous
  Country: US (occurrence: US)
  Receive Date: 20170119
  Receipt Date: 20170119
  Transmission Date: 20170428
  Serious: Yes (Other)
  Sender: FDA-Public Use
  Company Number: US-ROCHE-1880935

PATIENT
  Sex: Male

DRUGS (3)
  1. BENDAMUSTINE [Concomitant]
     Active Substance: BENDAMUSTINE
     Dosage: ONGOING;YES
     Route: 065
  2. RITUXAN [Suspect]
     Active Substance: RITUXIMAB
     Indication: B-CELL LYMPHOMA
     Dosage: ONGOING;NO
     Route: 041
  3. GAZYVA [Suspect]
     Active Substance: OBINUTUZUMAB
     Indication: B-CELL LYMPHOMA
     Dosage: EVERY 28 DAYS ;ONGOING: YES
     Route: 041

REACTIONS (3)
  - Dizziness [Recovered/Resolved]
  - Infection [Recovered/Resolved]
  - Progressive multifocal leukoencephalopathy [Unknown]
